FAERS Safety Report 15318372 (Version 1)
Quarter: 2018Q3

REPORT INFORMATION
  Report Type: Report from Study
  Country: US (occurrence: US)
  Receive Date: 20180825
  Receipt Date: 20180825
  Transmission Date: 20181010
  Serious: Yes (Other)
  Sender: FDA-Public Use
  Company Number: PHHY2018US009308

PATIENT
  Age: 26 Year
  Sex: Female

DRUGS (1)
  1. GILENYA [Suspect]
     Active Substance: FINGOLIMOD HYDROCHLORIDE
     Indication: MULTIPLE SCLEROSIS
     Dosage: UNK, QD
     Route: 048

REACTIONS (13)
  - Dysphagia [Unknown]
  - Joint instability [Unknown]
  - Hypoaesthesia [Unknown]
  - Paraesthesia [Unknown]
  - Hemiparesis [Unknown]
  - Pain of skin [Unknown]
  - Pain in extremity [Unknown]
  - Arthralgia [Unknown]
  - Oropharyngeal pain [Unknown]
  - Weight increased [Unknown]
  - Lymphocyte count decreased [Unknown]
  - Muscular weakness [Unknown]
  - Uhthoff^s phenomenon [Unknown]

NARRATIVE: CASE EVENT DATE: 20180401
